FAERS Safety Report 7248897-4 (Version None)
Quarter: 2011Q1

REPORT INFORMATION
  Report Type: 
  Country: None (occurrence: None)
  Receive Date: 20110128
  Receipt Date: 20101123
  Transmission Date: 20110831
  Serious: Yes (Hospitalization)
  Sender: FDA-Public Use
  Company Number: US-BAYER-2010-000830

PATIENT
  Sex: Female
  Weight: 74.83 kg

DRUGS (6)
  1. ASPIRIN [Suspect]
     Indication: MYOCARDIAL INFARCTION
     Dosage: 81 MG, QD
     Dates: start: 20050101
  2. ASPIRIN [Suspect]
     Dosage: 81 MG, QD
     Dates: start: 20050101
  3. CRESTOR [Concomitant]
  4. ZOLOFT [Concomitant]
  5. SYNTHROID [Concomitant]
  6. BUSPIRONE [Concomitant]

REACTIONS (1)
  - MYOCARDIAL INFARCTION [None]
